FAERS Safety Report 23026430 (Version 2)
Quarter: 2023Q4

REPORT INFORMATION
  Report Type: Spontaneous
  Country: CA (occurrence: CA)
  Receive Date: 20231004
  Receipt Date: 20231006
  Transmission Date: 20240110
  Serious: Yes (Life-Threatening, Hospitalization, Other)
  Sender: FDA-Public Use
  Company Number: CA-002147023-NVSC2023CA064598

PATIENT
  Age: 68 Year
  Sex: Female
  Weight: 48 kg

DRUGS (7)
  1. IMODIUM [Concomitant]
     Active Substance: LOPERAMIDE HYDROCHLORIDE
     Indication: Product used for unknown indication
     Dosage: UNK, Q12H
     Route: 065
  2. OXYCODONE [Concomitant]
     Active Substance: OXYCODONE
     Indication: Product used for unknown indication
     Dosage: 5 MG, Q12H
     Route: 065
  3. OXYCODONE [Concomitant]
     Active Substance: OXYCODONE
     Dosage: 7.5 MG, QD
     Route: 065
  4. HERBALS\PLANTAGO OVATA LEAF [Concomitant]
     Active Substance: HERBALS\PLANTAGO OVATA LEAF
     Indication: Product used for unknown indication
     Dosage: UNK, Q12H
     Route: 065
  5. PREMARIN [Concomitant]
     Active Substance: ESTROGENS, CONJUGATED
     Indication: Product used for unknown indication
     Dosage: 0.3 MG
     Route: 065
  6. ADALIMUMAB [Interacting]
     Active Substance: ADALIMUMAB
     Indication: Colitis ulcerative
     Dosage: 40 MG, Q2W
     Route: 058
  7. NITROFURANTOIN [Interacting]
     Active Substance: NITROFURANTOIN
     Indication: Urinary tract infection
     Dosage: 100 MG, QD
     Route: 065

REACTIONS (10)
  - Cystitis bacterial [Recovered/Resolved]
  - Cystitis viral [Recovered/Resolved]
  - Fungal cystitis [Recovered/Resolved]
  - Urosepsis [Not Recovered/Not Resolved]
  - Urinary tract infection [Recovered/Resolved]
  - Drug interaction [Recovered/Resolved]
  - Anorectal infection [Not Recovered/Not Resolved]
  - Diversion colitis [Not Recovered/Not Resolved]
  - Impaired quality of life [Not Recovered/Not Resolved]
  - Product use in unapproved indication [Not Recovered/Not Resolved]
